FAERS Safety Report 10081904 (Version 1)
Quarter: 2014Q2

REPORT INFORMATION
  Report Type: Spontaneous
  Country: US (occurrence: US)
  Receive Date: 20140416
  Receipt Date: 20140416
  Transmission Date: 20141212
  Serious: Yes (Other)
  Sender: FDA-Public Use
  Company Number: US-GLAXOSMITHKLINE-A1068881A

PATIENT
  Age: 67 Year
  Sex: Female

DRUGS (5)
  1. ADVAIR [Suspect]
     Indication: ASTHMA
     Dosage: 1PUFF TWICE PER DAY
     Route: 055
  2. DIABETES MEDICATION [Concomitant]
  3. UNKNOWN STOMACH MEDICATION [Concomitant]
  4. PAIN MEDICATION [Concomitant]
  5. MULTIVITAMINS [Concomitant]

REACTIONS (1)
  - Lung neoplasm malignant [Unknown]
